FAERS Safety Report 13201296 (Version 2)
Quarter: 2017Q1

REPORT INFORMATION
  Report Type: Report from Study
  Country: US (occurrence: US)
  Receive Date: 20170209
  Receipt Date: 20170222
  Transmission Date: 20170428
  Serious: Yes (Hospitalization)
  Sender: FDA-Public Use
  Company Number: US-VIFOR (INTERNATIONAL) INC.-VIT-2017-00950

PATIENT
  Age: 74 Year
  Sex: Female

DRUGS (14)
  1. ALLOPURINOL. [Concomitant]
     Active Substance: ALLOPURINOL
  2. VITAMINS NOS [Concomitant]
     Active Substance: VITAMINS
  3. VELTASSA [Suspect]
     Active Substance: PATIROMER
     Route: 048
     Dates: start: 20161101
  4. PARACETAMOL [Concomitant]
     Active Substance: ACETAMINOPHEN
  5. CITALOPRAM HYDROBROMIDE. [Concomitant]
     Active Substance: CITALOPRAM HYDROBROMIDE
  6. TRICOR [Concomitant]
     Active Substance: FENOFIBRATE
  7. COLACE [Concomitant]
     Active Substance: DOCUSATE SODIUM
  8. LORATADINE. [Concomitant]
     Active Substance: LORATADINE
  9. VELTASSA [Suspect]
     Active Substance: PATIROMER
     Indication: HYPERKALAEMIA
     Dates: start: 20161020, end: 20161128
  10. LEVOTHYROXINE SODIUM. [Concomitant]
     Active Substance: LEVOTHYROXINE SODIUM
  11. GABAPENTIN. [Concomitant]
     Active Substance: GABAPENTIN
  12. AMLODIPINE BESILATE [Concomitant]
     Active Substance: AMLODIPINE BESYLATE
  13. FERROUS SULFATE. [Concomitant]
     Active Substance: FERROUS SULFATE
  14. HYDROCHLOROTHIAZIDE/LOSARTAN POTASSIUM [Concomitant]

REACTIONS (4)
  - Post procedural complication [Unknown]
  - Joint injury [Unknown]
  - Inappropriate schedule of drug administration [Unknown]
  - Knee operation [Unknown]

NARRATIVE: CASE EVENT DATE: 2016
